FAERS Safety Report 18467271 (Version 1)
Quarter: 2020Q4

REPORT INFORMATION
  Report Type: Spontaneous
  Country: US (occurrence: US)
  Receive Date: 20201105
  Receipt Date: 20201105
  Transmission Date: 20210114
  Serious: Yes (Other)
  Sender: FDA-Public Use
  Company Number: US-NOVOPROD-763728

PATIENT
  Age: 53 Year
  Sex: Female

DRUGS (1)
  1. NOVOLOG [Suspect]
     Active Substance: INSULIN ASPART
     Indication: PRODUCT USED FOR UNKNOWN INDICATION
     Dosage: UNK
     Route: 065

REACTIONS (7)
  - Blood glucose increased [Not Recovered/Not Resolved]
  - Ankle fracture [Recovering/Resolving]
  - Road traffic accident [Not Recovered/Not Resolved]
  - Skin injury [Recovering/Resolving]
  - Limb injury [Recovering/Resolving]
  - Product storage error [Unknown]
  - Stress [Unknown]

NARRATIVE: CASE EVENT DATE: 20201015
